FAERS Safety Report 7435757 (Version 4)
Quarter: 2013Q1

REPORT INFORMATION
  Report Type: Spontaneous
  Country: US (occurrence: US)
  Receive Date: 20100625
  Receipt Date: 20130315
  Transmission Date: 20140127
  Serious: Yes (Hospitalization)
  Sender: FDA-Public Use
  Company Number: US-BIOGENIDEC-2010BI021028

PATIENT
  Age: 46 Year
  Sex: Female

DRUGS (2)
  1. AVONEX [Suspect]
     Indication: MULTIPLE SCLEROSIS
     Route: 030
     Dates: start: 20001124
  2. AVONEX [Suspect]
     Indication: MULTIPLE SCLEROSIS
     Route: 030
     Dates: start: 20091216

REACTIONS (8)
  - Uterine prolapse [Recovered/Resolved]
  - Bladder prolapse [Recovered/Resolved]
  - Tremor [Unknown]
  - Amnesia [Unknown]
  - Weight decreased [Unknown]
  - Drug hypersensitivity [Unknown]
  - Myalgia [Unknown]
  - Headache [Unknown]
